FAERS Safety Report 5654822-X (Version None)
Quarter: 2008Q1

REPORT INFORMATION
  Report Type: 
  Country: None (occurrence: None)
  Receive Date: 20080307
  Receipt Date: 20070731
  Transmission Date: 20080703
  Serious: No
  Sender: FDA-Public Use
  Company Number: A0667331A

PATIENT
  Age: 51 Year
  Sex: Female

DRUGS (8)
  1. REQUIP [Suspect]
     Indication: RESTLESS LEGS SYNDROME
     Dosage: 1MG SEE DOSAGE TEXT
     Route: 048
     Dates: start: 20070201
  2. PREVACID [Concomitant]
  3. TRICOR [Concomitant]
  4. SIMVASTATIN [Concomitant]
  5. MULTI-VITAMIN [Concomitant]
  6. FISH OIL [Concomitant]
  7. ASPIRIN [Concomitant]
  8. CALCIUM [Concomitant]

REACTIONS (1)
  - THERAPEUTIC RESPONSE DECREASED [None]
